FAERS Safety Report 19886695 (Version 1)
Quarter: 2021Q3

REPORT INFORMATION
  Report Type: Spontaneous
  Country: PL (occurrence: PL)
  Receive Date: 20210927
  Receipt Date: 20210927
  Transmission Date: 20211014
  Serious: Yes (Other)
  Sender: FDA-Public Use
  Company Number: PL-ACCORD-239694

PATIENT
  Age: 84 Year
  Sex: Female
  Weight: 52 kg

DRUGS (2)
  1. GEMCITABINE/GEMCITABINE HYDROCHLORIDE [Suspect]
     Active Substance: GEMCITABINE\GEMCITABINE HYDROCHLORIDE
     Indication: HEPATOBILIARY CANCER
     Dosage: DOSE: 1200 UNIT UNKNOWN. THERAPY ONGOING.
     Route: 042
     Dates: start: 20200724
  2. CISPLATINUM ACCORD [Suspect]
     Active Substance: CISPLATIN
     Indication: HEPATOBILIARY CANCER
     Dosage: DOSE: 18 UNIT UNKNOWN. THERAPY ONGOING.
     Route: 042
     Dates: start: 20200724

REACTIONS (1)
  - Cholangitis [Unknown]

NARRATIVE: CASE EVENT DATE: 20210122
